FAERS Safety Report 22075952 (Version 1)
Quarter: 2023Q1

REPORT INFORMATION
  Report Type: Other
  Country: None (occurrence: CA)
  Receive Date: 20230308
  Receipt Date: 20230308
  Transmission Date: 20230417
  Serious: Yes (Congenital Anomaly)
  Sender: FDA-Public Use
  Company Number: CA-OrBion Pharmaceuticals Private Limited-2138859

PATIENT
  Age: 28 Month
  Sex: Female

DRUGS (1)
  1. LEVETIRACETAM [Suspect]
     Active Substance: LEVETIRACETAM
     Indication: Epilepsy
     Route: 015

REACTIONS (3)
  - Congenital eye disorder [Unknown]
  - Hypotonia [Unknown]
  - Foetal exposure during pregnancy [Not Recovered/Not Resolved]
